FAERS Safety Report 21216984 (Version 1)
Quarter: 2022Q3

REPORT INFORMATION
  Report Type: Spontaneous
  Country: US (occurrence: US)
  Receive Date: 20220816
  Receipt Date: 20220816
  Transmission Date: 20221027
  Serious: Yes (Other)
  Sender: FDA-Public Use
  Company Number: US-SA-SAC20220815000817

PATIENT
  Sex: Female

DRUGS (3)
  1. DUPIXENT [Suspect]
     Active Substance: DUPILUMAB
     Indication: Psoriasis
     Dosage: UNK
     Route: 065
  2. HUMIRA [Suspect]
     Active Substance: ADALIMUMAB
     Indication: Product used for unknown indication
     Dosage: UNK
  3. STELARA [Concomitant]
     Active Substance: USTEKINUMAB
     Dosage: UNK

REACTIONS (10)
  - Cataract [Unknown]
  - Malaise [Unknown]
  - Abdominal discomfort [Unknown]
  - Eye infection [Unknown]
  - Eye pain [Unknown]
  - Rash vesicular [Unknown]
  - Pain in extremity [Unknown]
  - Illness [Unknown]
  - Rash [Unknown]
  - Product use in unapproved indication [Unknown]
